FAERS Safety Report 12891078 (Version 1)
Quarter: 2016Q4

REPORT INFORMATION
  Report Type: Spontaneous
  Country: None (occurrence: US)
  Receive Date: 20161025
  Receipt Date: 20161025
  Transmission Date: 20170207
  Serious: Yes (Hospitalization)
  Sender: FDA-Public Use
  Company Number: None

PATIENT
  Age: 19 Year
  Sex: Male

DRUGS (1)
  1. GAMMAGARD [Suspect]
     Active Substance: HUMAN IMMUNOGLOBULIN G
     Indication: IMMUNODEFICIENCY
     Dosage: INFUSE 120GM EVERY 28 DAYS IV
     Route: 042
     Dates: start: 20140613

REACTIONS (2)
  - Seizure [None]
  - Screaming [None]

NARRATIVE: CASE EVENT DATE: 20161020
